FAERS Safety Report 5980183-2 (Version None)
Quarter: 2008Q4

REPORT INFORMATION
  Report Type: 
  Country: None (occurrence: None)
  Receive Date: 20081202
  Receipt Date: 20081202
  Transmission Date: 20090506
  Serious: Yes (Life-Threatening, Hospitalization, Disabling, Other)
  Sender: FDA-Public Use
  Company Number: None

PATIENT
  Age: 50 Year
  Sex: Female
  Weight: 89.8122 kg

DRUGS (1)
  1. ETODOLAC [Suspect]
     Indication: ARTHRALGIA
     Dosage: ONE TWICE PO
     Route: 048
     Dates: start: 20080820, end: 20081129

REACTIONS (7)
  - ABDOMINAL PAIN UPPER [None]
  - DRUG INEFFECTIVE [None]
  - FALL [None]
  - GASTRIC PERFORATION [None]
  - INTESTINAL PERFORATION [None]
  - ULCER HAEMORRHAGE [None]
  - WRIST FRACTURE [None]
